FAERS Safety Report 17809182 (Version 1)
Quarter: 2020Q2

REPORT INFORMATION
  Report Type: Spontaneous
  Country: ES (occurrence: ES)
  Receive Date: 20200520
  Receipt Date: 20200520
  Transmission Date: 20200714
  Serious: Yes (Death, Hospitalization)
  Sender: FDA-Public Use
  Company Number: ES-SANIK-2018SA261727AA

PATIENT
  Age: 80 Year
  Sex: Male

DRUGS (11)
  1. SERTRALINA WINTHROP [Interacting]
     Active Substance: SERTRALINE HYDROCHLORIDE
     Dosage: 50 MG, TOTAL
     Route: 048
     Dates: start: 20180718, end: 20180718
  2. PREGABALIN. [Interacting]
     Active Substance: PREGABALIN
     Dosage: 300 MG, TOTAL
     Route: 048
     Dates: start: 20180718, end: 20180718
  3. LORAZEPAM. [Interacting]
     Active Substance: LORAZEPAM
     Dosage: 1 MG, QD
     Route: 048
     Dates: start: 20180718, end: 20180718
  4. QUETIAPINE FUMARATE. [Interacting]
     Active Substance: QUETIAPINE FUMARATE
     Dosage: 100 MG, TOTAL
     Route: 048
     Dates: start: 20180718, end: 20180718
  5. AMLODIPINE [Suspect]
     Active Substance: AMLODIPINE BESYLATE
     Dosage: 5 MG, QD
     Route: 048
     Dates: start: 20180718, end: 20180718
  6. PLAVIX [Suspect]
     Active Substance: CLOPIDOGREL BISULFATE
     Dosage: UNK UNK, QD
     Route: 048
     Dates: start: 20180718, end: 20180718
  7. SIMVASTATINA WINTHROP [Suspect]
     Active Substance: SIMVASTATIN
     Dosage: 10 MG, QD
     Route: 048
     Dates: start: 20180718, end: 20180718
  8. DUPHALAC [Suspect]
     Active Substance: LACTULOSE
     Dosage: UNK UNK, QD
     Route: 048
     Dates: start: 20180718, end: 20180718
  9. MIRTAZAPINA WINTHROP [Suspect]
     Active Substance: MIRTAZAPINE
     Dosage: 15 MG, QD
     Route: 048
     Dates: start: 20180718, end: 20180718
  10. CROMATONBIC [Suspect]
     Active Substance: VITAMINS
     Dosage: UNK, QD
     Route: 048
     Dates: start: 20180718, end: 20180718
  11. CARBIDOPA/LEVODOPA [Suspect]
     Active Substance: CARBIDOPA\LEVODOPA
     Dosage: 1 DF, TID
     Route: 048
     Dates: start: 20180718, end: 20180718

REACTIONS (3)
  - Drug interaction [Unknown]
  - Hypotension [Fatal]
  - Wrong patient received product [Fatal]

NARRATIVE: CASE EVENT DATE: 20180718
